FAERS Safety Report 4919861-2 (Version None)
Quarter: 2006Q1

REPORT INFORMATION
  Report Type: 
  Country: None (occurrence: None)
  Receive Date: 20060216
  Receipt Date: 20060206
  Transmission Date: 20060701
  Serious: Yes (Other)
  Sender: FDA-Public Use
  Company Number: GXKR2006GB00849

PATIENT
  Age: 70 Year
  Sex: Female
  Weight: 50.5 kg

DRUGS (3)
  1. CITALOPRAM BC (NGX) (CITALOPRAM) [Suspect]
     Dosage: 20 MG, QD, ORAL
     Route: 048
     Dates: start: 20040524
  2. ESOMEPRAZOLE (ESOMEPRAZOLE) [Concomitant]
  3. ISOPROPYL MYRISTATE (ISOPROPYL MYRISTATE) [Concomitant]

REACTIONS (1)
  - PAROSMIA [None]
